FAERS Safety Report 8607881-6 (Version None)
Quarter: 2012Q3

REPORT INFORMATION
  Report Type: 
  Country: None (occurrence: None)
  Receive Date: 20120821
  Receipt Date: 20120807
  Transmission Date: 20120928
  Serious: Yes (Hospitalization)
  Sender: FDA-Public Use
  Company Number: US-MYLANLABS-2012S1016414

PATIENT
  Age: 51 Year
  Sex: Male

DRUGS (1)
  1. METHIMAZOLE [Suspect]
     Indication: BASEDOW'S DISEASE
     Dosage: 3 TIMES PER DAY
     Route: 065

REACTIONS (3)
  - PYREXIA [None]
  - POLYARTHRITIS [None]
  - JOINT EFFUSION [None]
